FAERS Safety Report 8916228 (Version 1)
Quarter: 2012Q4

REPORT INFORMATION
  Report Type: 
  Country: US (occurrence: US)
  Receive Date: 20121120
  Receipt Date: 20121120
  Transmission Date: 20130627
  Serious: Yes (Other)
  Sender: FDA-Public Use
  Company Number: US-ELI_LILLY_AND_COMPANY-US201211002912

PATIENT
  Age: 69 Year
  Sex: Male

DRUGS (3)
  1. FORTEO [Suspect]
     Dosage: UNK, unknown
     Route: 065
     Dates: start: 201103
  2. FORTEO [Suspect]
     Dosage: UNK, unknown
     Route: 065
  3. ALLOPURINOL [Concomitant]
     Dosage: UNK, unknown
     Route: 065

REACTIONS (1)
  - Non-Hodgkin^s lymphoma [Unknown]
